FAERS Safety Report 25222275 (Version 2)
Quarter: 2025Q2

REPORT INFORMATION
  Report Type: Spontaneous
  Country: JP (occurrence: JP)
  Receive Date: 20250421
  Receipt Date: 20250618
  Transmission Date: 20250716
  Serious: Yes (Hospitalization, Other)
  Sender: MERCK SHARP & DOHME LLC
  Company Number: JP-MSD-M2023-55507

PATIENT
  Age: 68 Year
  Sex: Female

DRUGS (12)
  1. KEYTRUDA [Suspect]
     Active Substance: PEMBROLIZUMAB
     Indication: Uterine cancer
     Dosage: DOSE DESCRIPTION : 200 MILLIGRAM, Q3W?DAILY DOSE : 9.4 MILLIGRAM?REGIMEN DOSE : 200  MILLIGRAM
     Route: 041
     Dates: start: 20231204
  2. KEYTRUDA [Suspect]
     Active Substance: PEMBROLIZUMAB
     Indication: Uterine cancer
     Dosage: DOSE DESCRIPTION : 200 MILLIGRAM, Q3W?DAILY DOSE : 9.4 MILLIGRAM?REGIMEN DOSE : 1600  MILLIGRAM
     Route: 041
     Dates: start: 20240325, end: 20240820
  3. KEYTRUDA [Suspect]
     Active Substance: PEMBROLIZUMAB
     Indication: Uterine cancer
     Route: 041
     Dates: start: 20241022
  4. LENVATINIB MESYLATE [Suspect]
     Active Substance: LENVATINIB MESYLATE
     Indication: Uterine cancer
     Dosage: DOSE DESCRIPTION : 20 MILLIGRAM, QD?DAILY DOSE : 20 MILLIGRAM?REGIMEN DOSE : 380  MILLIGRAM
     Route: 048
     Dates: start: 20231204, end: 20231222
  5. LENVATINIB MESYLATE [Suspect]
     Active Substance: LENVATINIB MESYLATE
     Indication: Uterine cancer
     Route: 048
     Dates: end: 20240318
  6. LENVATINIB MESYLATE [Suspect]
     Active Substance: LENVATINIB MESYLATE
     Indication: Uterine cancer
     Dosage: DOSE DESCRIPTION : 10 MILLIGRAM, QD?DAILY DOSE : 10 MILLIGRAM?REGIMEN DOSE : 90  MILLIGRAM
     Route: 048
     Dates: start: 20240325, end: 20240402
  7. LENVATINIB MESYLATE [Suspect]
     Active Substance: LENVATINIB MESYLATE
     Indication: Uterine cancer
     Route: 048
     Dates: start: 2024, end: 2024
  8. LENVATINIB MESYLATE [Suspect]
     Active Substance: LENVATINIB MESYLATE
     Indication: Uterine cancer
     Dosage: DOSE DESCRIPTION : 4 MILLIGRAM, QD?DAILY DOSE : 4 MILLIGRAM?REGIMEN DOSE : 368  MILLIGRAM
     Route: 048
     Dates: start: 20240529, end: 20240828
  9. LENVATINIB MESYLATE [Suspect]
     Active Substance: LENVATINIB MESYLATE
     Indication: Uterine cancer
     Route: 048
     Dates: start: 20241005
  10. SACUBITRIL\VALSARTAN [Suspect]
     Active Substance: SACUBITRIL\VALSARTAN
     Indication: Hypertension
     Route: 065
     Dates: end: 20231218
  11. ZOSYN [Suspect]
     Active Substance: PIPERACILLIN SODIUM\TAZOBACTAM SODIUM
     Indication: Cholecystitis
     Route: 065
     Dates: start: 20231211, end: 20231218
  12. NIFEDIPINE [Concomitant]
     Active Substance: NIFEDIPINE
     Indication: Hypertension
     Route: 065

REACTIONS (11)
  - Immune-mediated cholangitis [Recovered/Resolved]
  - Platelet count decreased [Recovered/Resolved]
  - Hyperthyroidism [Recovered/Resolved]
  - Hypothyroidism [Recovering/Resolving]
  - Urinary tract infection [Recovering/Resolving]
  - Cholecystitis [Recovering/Resolving]
  - White blood cell count decreased [Recovered/Resolved]
  - Drug eruption [Recovering/Resolving]
  - Hepatic enzyme increased [Recovering/Resolving]
  - Proteinuria [Unknown]
  - Hypertension [Recovered/Resolved]

NARRATIVE: CASE EVENT DATE: 20231201
